FAERS Safety Report 4874092-X (Version None)
Quarter: 2006Q1

REPORT INFORMATION
  Report Type: 
  Country: None (occurrence: None)
  Receive Date: 20060104
  Receipt Date: 20051220
  Transmission Date: 20060701
  Serious: Yes (Hospitalization, Other)
  Sender: FDA-Public Use
  Company Number: 2005172168

PATIENT
  Age: 47 Year
  Sex: 0
  Weight: 65.7716 kg

DRUGS (2)
  1. LIPITOR [Suspect]
     Indication: BLOOD CHOLESTEROL
     Dosage: (1 IN 1D)
     Dates: start: 19980101
  2. RISPERDAL [Suspect]
     Indication: HALLUCINATION, AUDITORY
     Dosage: 20 MG
     Dates: start: 19960101, end: 20000101

REACTIONS (9)
  - ALOPECIA [None]
  - BLOOD CHOLESTEROL INCREASED [None]
  - CEREBROVASCULAR ACCIDENT [None]
  - CHOLELITHIASIS [None]
  - HERNIA [None]
  - HYPOTRICHOSIS [None]
  - NAUSEA [None]
  - SKIN DISORDER [None]
  - VOMITING [None]
